FAERS Safety Report 5006584-7 (Version None)
Quarter: 2006Q2

REPORT INFORMATION
  Report Type: 
  Country: None (occurrence: None)
  Receive Date: 20060519
  Receipt Date: 20060505
  Transmission Date: 20061013
  Serious: Yes (Other)
  Sender: FDA-Public Use
  Company Number: US-AVENTIS-200614128US

PATIENT
  Sex: Female

DRUGS (22)
  1. LANTUS [Suspect]
     Indication: HYPERGLYCAEMIA
     Dosage: DOSE UNIT: UNITS
     Dates: start: 20060224
  2. LANTUS [Suspect]
     Dosage: DOSE UNIT: UNITS
  3. LANTUS [Suspect]
     Dosage: DOSE UNIT: UNITS
  4. LANTUS [Suspect]
     Dosage: DOSE UNIT: UNITS
  5. OPTICLIK (INSULIN INJECTION PEN) [Suspect]
     Indication: HYPERGLYCAEMIA
  6. CREON [Concomitant]
     Dosage: DOSE: UNK
  7. XANAX [Concomitant]
     Dosage: DOSE: UNK
  8. HYDROCODONE [Concomitant]
     Dosage: DOSE: UNK
  9. K-DUR 10 [Concomitant]
     Dosage: DOSE: UNK
  10. TRICOR [Concomitant]
     Dosage: DOSE: UNK
  11. ASPIRIN [Concomitant]
     Dosage: DOSE: UNK
  12. ZOLOFT [Concomitant]
     Dosage: DOSE: UNK
  13. LASIX [Concomitant]
     Dosage: DOSE: UNK
  14. CLONIDINE [Concomitant]
     Dosage: DOSE: UNK
  15. PEPCID [Concomitant]
     Dosage: DOSE: UNK
  16. DECADRON SRC [Concomitant]
     Dosage: DOSE: UNK
  17. NICOTINE [Concomitant]
     Dosage: DOSE: UNK
     Route: 061
  18. TEMODAR [Concomitant]
     Indication: CHEMOTHERAPY
  19. SYNTHROID [Concomitant]
     Dosage: DOSE: UNK
  20. LORAZEPAM [Concomitant]
     Dosage: DOSE: UNK
  21. PROCHLORPERAZINE [Concomitant]
     Dosage: DOSE: UNK
  22. ZOFRAN [Concomitant]
     Dosage: DOSE: UNK

REACTIONS (4)
  - BLINDNESS UNILATERAL [None]
  - HYPERGLYCAEMIA [None]
  - PHARMACEUTICAL PRODUCT COMPLAINT [None]
  - VISUAL FIELD DEFECT [None]
